FAERS Safety Report 8543980-5 (Version None)
Quarter: 2012Q3

REPORT INFORMATION
  Report Type: 
  Country: None (occurrence: None)
  Receive Date: 20120717
  Receipt Date: 20120702
  Transmission Date: 20120928
  Serious: Yes (Hospitalization)
  Sender: FDA-Public Use
  Company Number: JPI-P-022416

PATIENT
  Age: 45 Year
  Sex: Male

DRUGS (1)
  1. XYREM [Suspect]
     Dosage: ORAL
     Route: 048
     Dates: start: 20040823

REACTIONS (3)
  - UNRESPONSIVE TO STIMULI [None]
  - CONVULSION [None]
  - CATAPLEXY [None]
